FAERS Safety Report 13485233 (Version 2)
Quarter: 2017Q2

REPORT INFORMATION
  Report Type: Spontaneous
  Country: DE (occurrence: DE)
  Receive Date: 20170425
  Receipt Date: 20170508
  Transmission Date: 20170830
  Serious: Yes (Hospitalization, Other)
  Sender: FDA-Public Use
  Company Number: GXKR2017DE002355

PATIENT
  Age: 74 Year
  Sex: Female
  Weight: 57 kg

DRUGS (2)
  1. MCP [Suspect]
     Active Substance: METOCLOPRAMIDE HYDROCHLORIDE
     Indication: ADVERSE EVENT
     Dosage: 20 MG DAILY
     Route: 048
     Dates: start: 20170411, end: 20170414
  2. DUROGESIC SMAT [Concomitant]
     Active Substance: FENTANYL
     Indication: CANCER PAIN
     Dosage: UNK UG/HR, UNK
     Route: 062
     Dates: start: 20170309

REACTIONS (5)
  - Communication disorder [Recovering/Resolving]
  - Asthenia [Recovering/Resolving]
  - Vomiting [Recovering/Resolving]
  - Miosis [Recovering/Resolving]
  - Respiratory rate decreased [Recovering/Resolving]

NARRATIVE: CASE EVENT DATE: 20170413
